FAERS Safety Report 18375058 (Version 3)
Quarter: 2020Q4

REPORT INFORMATION
  Report Type: Spontaneous
  Country: CA (occurrence: CA)
  Receive Date: 20201013
  Receipt Date: 20201218
  Transmission Date: 20210114
  Serious: Yes (Other)
  Sender: FDA-Public Use
  Company Number: CA-CELLTRION INC.-2017CA015127

PATIENT

DRUGS (26)
  1. INFLECTRA [Suspect]
     Active Substance: INFLIXIMAB-DYYB
     Dosage: 325 MG, SINGLE
     Dates: start: 20171115
  2. INFLECTRA [Suspect]
     Active Substance: INFLIXIMAB-DYYB
     Dosage: 325 MG, EVERY 6 WEEKS THEN EVERY 8 WEEKS
     Route: 042
     Dates: start: 20180425
  3. INFLECTRA [Suspect]
     Active Substance: INFLIXIMAB-DYYB
     Dosage: 400 MG EVERY 6 WEEKS , THEN EVERY 8 WEEKS
     Route: 042
     Dates: start: 20191108
  4. INFLECTRA [Suspect]
     Active Substance: INFLIXIMAB-DYYB
     Dosage: 400 MG EVERY 6 WEEKS , THEN EVERY 8 WEEKS
     Route: 042
     Dates: start: 20200623
  5. INFLECTRA [Suspect]
     Active Substance: INFLIXIMAB-DYYB
     Indication: CROHN^S DISEASE
     Dosage: 325 MG OR 4 VIALS (5 MG/KG), EVERY 0,2,6 WEEKS, THEN EVERY 8 WEEKS
     Route: 042
     Dates: start: 20171002, end: 20171018
  6. INFLECTRA [Suspect]
     Active Substance: INFLIXIMAB-DYYB
     Dosage: 325MG, EVERY 6 WEEKS, THEN EVERY 8 WEEKS
     Route: 042
     Dates: start: 20171004
  7. INFLECTRA [Suspect]
     Active Substance: INFLIXIMAB-DYYB
     Dosage: 400 MG, 6 WEEK, THEN EVERY 8 WEEKS
     Route: 042
     Dates: start: 20171115
  8. INFLECTRA [Suspect]
     Active Substance: INFLIXIMAB-DYYB
     Dosage: 325 MG, EVERY 6 WEEKS THEN EVERY 8 WEEKS
     Route: 042
     Dates: start: 20180622
  9. INFLECTRA [Suspect]
     Active Substance: INFLIXIMAB-DYYB
     Dosage: 325 MG, EVERY 6 WEEKS, THEN EVERY 8 WEEKS
     Route: 042
     Dates: start: 20190401
  10. INFLECTRA [Suspect]
     Active Substance: INFLIXIMAB-DYYB
     Dosage: 400 MG EVERY 6 WEEKS , THEN EVERY 8 WEEKS
     Route: 042
     Dates: start: 20200427
  11. INFLECTRA [Suspect]
     Active Substance: INFLIXIMAB-DYYB
     Dosage: 325 MG, EVERY 6 WEEKS THEN EVERY 8 WEEKS
     Route: 042
     Dates: start: 20180302
  12. INFLECTRA [Suspect]
     Active Substance: INFLIXIMAB-DYYB
     Dosage: 400 MG EVERY 6 WEEKS , THEN EVERY 8 WEEKS
     Route: 042
     Dates: start: 20190720
  13. INFLECTRA [Suspect]
     Active Substance: INFLIXIMAB-DYYB
     Dosage: 400 MG EVERY 6 WEEKS , THEN EVERY 8 WEEKS
     Route: 042
     Dates: start: 20190911
  14. INFLECTRA [Suspect]
     Active Substance: INFLIXIMAB-DYYB
     Dosage: 400 MG EVERY 6 WEEKS , THEN EVERY 8 WEEKS
     Route: 042
     Dates: start: 20200118
  15. INFLECTRA [Suspect]
     Active Substance: INFLIXIMAB-DYYB
     Dosage: 400 MG EVERY 6 WEEKS , THEN EVERY 8 WEEKS
     Route: 042
     Dates: start: 20200817
  16. IMURAN [Concomitant]
     Active Substance: AZATHIOPRINE
     Dosage: 150 MG, 1X/DAY
     Route: 048
     Dates: start: 2011
  17. INFLECTRA [Suspect]
     Active Substance: INFLIXIMAB-DYYB
     Dosage: 325 MG, EVERY 6 WEEKS, THEN EVERY 8 WEEKS
     Route: 042
     Dates: start: 20180816
  18. INFLECTRA [Suspect]
     Active Substance: INFLIXIMAB-DYYB
     Dosage: 400 MG, UNK
  19. INFLECTRA [Suspect]
     Active Substance: INFLIXIMAB-DYYB
     Dosage: 325 MG, EVERY 6 WEEKS, THEN EVERY 8 WEEKS
     Route: 042
     Dates: start: 20190128
  20. INFLECTRA [Suspect]
     Active Substance: INFLIXIMAB-DYYB
     Dosage: 400 MG EVERY 6 WEEKS , THEN EVERY 8 WEEKS
     Route: 042
     Dates: start: 20190525
  21. INFLECTRA [Suspect]
     Active Substance: INFLIXIMAB-DYYB
     Dosage: 400 MG EVERY 6 WEEKS , THEN EVERY 8 WEEKS
     Route: 042
     Dates: start: 20191108
  22. INFLECTRA [Suspect]
     Active Substance: INFLIXIMAB-DYYB
     Dosage: 400 MG EVERY 6 WEEKS , THEN EVERY 8 WEEKS
     Route: 042
     Dates: start: 20201013
  23. INFLECTRA [Suspect]
     Active Substance: INFLIXIMAB-DYYB
     Dosage: 325 MG, EVERY 6 WEEKS, THEN EVERY 8 WEEKS
     Route: 042
     Dates: start: 20181012
  24. INFLECTRA [Suspect]
     Active Substance: INFLIXIMAB-DYYB
     Dosage: 400 MG EVERY 6 WEEKS , THEN EVERY 8 WEEKS
     Route: 042
     Dates: start: 20200307
  25. INFLECTRA [Suspect]
     Active Substance: INFLIXIMAB-DYYB
     Dosage: 400 MG EVERY 6 WEEKS , THEN EVERY 8 WEEKS
     Route: 042
     Dates: start: 20200427
  26. INFLECTRA [Suspect]
     Active Substance: INFLIXIMAB-DYYB
     Dosage: 400 MG EVERY 6 WEEKS , THEN EVERY 8 WEEKS
     Route: 042
     Dates: start: 20201210

REACTIONS (12)
  - Off label use [Unknown]
  - Abdominal discomfort [Unknown]
  - Diarrhoea [Recovering/Resolving]
  - Disease recurrence [Unknown]
  - Nephrolithiasis [Unknown]
  - Incorrect dose administered [Unknown]
  - Respiration abnormal [Recovered/Resolved]
  - Heart rate irregular [Unknown]
  - Pain [Unknown]
  - Inappropriate schedule of product administration [Unknown]
  - Paraesthesia [Recovered/Resolved]
  - Product use issue [Unknown]

NARRATIVE: CASE EVENT DATE: 20171020
